FAERS Safety Report 7584513-X (Version None)
Quarter: 2011Q2

REPORT INFORMATION
  Report Type: 
  Country: None (occurrence: None)
  Receive Date: 20110630
  Receipt Date: 20110628
  Transmission Date: 20111010
  Serious: Yes (Disabling)
  Sender: FDA-Public Use
  Company Number: DE-ABBOTT-11P-062-0835142-00

PATIENT
  Age: 43 Year
  Sex: Male

DRUGS (3)
  1. ZEMPLAR [Suspect]
     Indication: RENAL FAILURE
     Dates: start: 20100101
  2. VITARENAL [Concomitant]
     Indication: PRODUCT USED FOR UNKNOWN INDICATION
     Route: 048
     Dates: start: 20100507
  3. PANTOPRAZOLE [Concomitant]
     Indication: PRODUCT USED FOR UNKNOWN INDICATION
     Route: 048
     Dates: start: 20100517

REACTIONS (1)
  - RENAL FAILURE [None]
